FAERS Safety Report 14323034 (Version 1)
Quarter: 2017Q4

REPORT INFORMATION
  Report Type: Spontaneous
  Country: DE (occurrence: DE)
  Receive Date: 20171226
  Receipt Date: 20171226
  Transmission Date: 20180321
  Serious: Yes (Other)
  Sender: FDA-Public Use
  Company Number: DE-CONCORDIA PHARMACEUTICALS INC.-E2B_00009036

PATIENT
  Age: 10 Year
  Sex: Female

DRUGS (5)
  1. PREDNISOLONE. [Suspect]
     Active Substance: PREDNISOLONE
     Indication: LANGERHANS^ CELL HISTIOCYTOSIS
     Dosage: INITIAL: 52 MG/DAY FOR 4 WEEKS; THEN: 25 MG/DAY FOR 1 WEEK AND 12 MG/DAY FOR 1 WEEK
     Dates: start: 20171011, end: 20171122
  2. AMPHO MORONAL SUSPENSION DERMAPHARM [Concomitant]
  3. COTRIM FORTE RATIOPHARM [Concomitant]
  4. VINBLASTINE [Concomitant]
     Active Substance: VINBLASTINE
     Indication: LANGERHANS^ CELL HISTIOCYTOSIS
  5. OMEPRAZOL RATIOPHARM [Concomitant]
     Active Substance: OMEPRAZOLE

REACTIONS (4)
  - Disorientation [Recovered/Resolved]
  - Confusional state [Recovered/Resolved]
  - Hallucination [Recovered/Resolved]
  - Lethargy [Recovered/Resolved]

NARRATIVE: CASE EVENT DATE: 20171123
